FAERS Safety Report 6979443-8 (Version None)
Quarter: 2010Q3

REPORT INFORMATION
  Report Type: 
  Country: None (occurrence: None)
  Receive Date: 20100913
  Receipt Date: 20100905
  Transmission Date: 20110219
  Serious: Yes (Life-Threatening)
  Sender: FDA-Public Use
  Company Number: LU-AMGEN-QUU427268

PATIENT
  Age: 80 Year
  Sex: Male
  Weight: 66 kg

DRUGS (2)
  1. ENBREL [Suspect]
     Indication: PSORIASIS
     Route: 058
     Dates: start: 20060720, end: 20100727
  2. LEDERTREXATE [Concomitant]
     Indication: PSORIASIS
     Route: 048
     Dates: start: 20060622

REACTIONS (1)
  - PROSTATE CANCER [None]
